FAERS Safety Report 4711057-2 (Version None)
Quarter: 2005Q3

REPORT INFORMATION
  Report Type: 
  Country: None (occurrence: None)
  Receive Date: 20050708
  Receipt Date: 20050708
  Transmission Date: 20060218
  Serious: Yes (Hospitalization)
  Sender: FDA-Public Use
  Company Number: None

PATIENT
  Sex: Female
  Weight: 68.0396 kg

DRUGS (2)
  1. SEROQUEL [Suspect]
     Indication: PSYCHOTIC DISORDER
     Dosage: 400 MG HS ORAL
     Route: 048
     Dates: start: 20050210, end: 20050422
  2. DIVALOPROEX ER [Concomitant]

REACTIONS (1)
  - NEUTROPENIA [None]
